FAERS Safety Report 7087552-0 (Version None)
Quarter: 2010Q4

REPORT INFORMATION
  Report Type: 
  Country: None (occurrence: None)
  Receive Date: 20101108
  Receipt Date: 20101027
  Transmission Date: 20110411
  Serious: No
  Sender: FDA-Public Use
  Company Number: US-BIOGENIDEC-2010BI038185

PATIENT
  Age: 52 Year
  Sex: Female

DRUGS (2)
  1. TYSABRI [Suspect]
     Indication: MULTIPLE SCLEROSIS
     Route: 042
     Dates: start: 20100719
  2. COMBINATION FLU INJECTION [Concomitant]
     Dates: start: 20101025

REACTIONS (14)
  - ABDOMINAL DISCOMFORT [None]
  - BURNING SENSATION [None]
  - DIARRHOEA [None]
  - DIZZINESS [None]
  - FALL [None]
  - HYPOTENSION [None]
  - INSOMNIA [None]
  - LYMPH NODE PAIN [None]
  - LYMPHADENOPATHY [None]
  - PAIN [None]
  - PHARYNGITIS [None]
  - PYREXIA [None]
  - RHINITIS [None]
  - SINUSITIS [None]
